FAERS Safety Report 13750903 (Version 1)
Quarter: 2017Q3

REPORT INFORMATION
  Report Type: Spontaneous
  Country: US (occurrence: US)
  Receive Date: 20170713
  Receipt Date: 20170713
  Transmission Date: 20171127
  Serious: No
  Sender: FDA-Public Use
  Company Number: US-ASTELLAS-2017US006333

PATIENT
  Sex: Female

DRUGS (2)
  1. MYRBETRIQ [Suspect]
     Active Substance: MIRABEGRON
     Indication: PRODUCT USED FOR UNKNOWN INDICATION
     Route: 065
     Dates: start: 2017
  2. TROSPIUM CHLORIDE. [Suspect]
     Active Substance: TROSPIUM CHLORIDE
     Indication: PRODUCT USED FOR UNKNOWN INDICATION
     Route: 065

REACTIONS (11)
  - Abdominal pain upper [Unknown]
  - Skin exfoliation [Unknown]
  - Headache [Unknown]
  - Dry skin [Unknown]
  - Nasal congestion [Unknown]
  - Influenza like illness [Unknown]
  - Diarrhoea [Unknown]
  - Intentional product misuse [Unknown]
  - Vomiting [Unknown]
  - Dizziness [Unknown]
  - Pigmentation disorder [Unknown]
